FAERS Safety Report 5243288-X (Version None)
Quarter: 2007Q1

REPORT INFORMATION
  Report Type: 
  Country: None (occurrence: None)
  Receive Date: 20070221
  Receipt Date: 20070209
  Transmission Date: 20070707
  Serious: Yes (Life-Threatening)
  Sender: FDA-Public Use
  Company Number: JP-PFIZER INC-2007012702

PATIENT
  Age: 73 Year
  Sex: Male
  Weight: 66 kg

DRUGS (4)
  1. IRINOTECAN HCL [Suspect]
     Indication: RECTAL CANCER
     Route: 042
     Dates: start: 20061004, end: 20061004
  2. IRINOTECAN HCL [Suspect]
     Dosage: DAILY DOSE:200MG
     Route: 042
     Dates: start: 20061021, end: 20070119
  3. FLUOROURACIL [Concomitant]
     Route: 042
  4. CALCIUM FOLINATE [Concomitant]

REACTIONS (3)
  - DYSPNOEA [None]
  - PYREXIA [None]
  - WHEEZING [None]
